FAERS Safety Report 9241832 (Version 1)
Quarter: 2013Q2

REPORT INFORMATION
  Report Type: Spontaneous
  Country: GB (occurrence: GB)
  Receive Date: 20130419
  Receipt Date: 20130419
  Transmission Date: 20140414
  Serious: Yes (Death, Other)
  Sender: FDA-Public Use
  Company Number: GB-RANBAXY-2005RR-00984

PATIENT
  Age: 56 Year
  Sex: Male

DRUGS (13)
  1. SIMVASTATIN [Suspect]
     Indication: PRODUCT USED FOR UNKNOWN INDICATION
     Dosage: 40 MG, QD
     Route: 048
  2. CLARITHROMYCIN [Interacting]
     Indication: LOWER RESPIRATORY TRACT INFECTION
     Dosage: 1 G, QD
     Route: 048
  3. AMIODARONE [Interacting]
     Indication: SUPRAVENTRICULAR TACHYCARDIA
     Dosage: 600 MG, QD
     Route: 048
  4. AMIODARONE [Interacting]
     Dosage: 400 MG, QD
     Route: 048
  5. AMIODARONE [Interacting]
     Dosage: 200 MG, QD
     Route: 048
  6. AMIODARONE [Interacting]
     Indication: SUPRAVENTRICULAR TACHYCARDIA
     Dosage: 1.2 G, QD
     Route: 042
  7. ADENOSINE [Concomitant]
     Indication: SUPRAVENTRICULAR TACHYCARDIA
     Dosage: UNK
     Route: 042
  8. ASPIRIN [Concomitant]
     Indication: PRODUCT USED FOR UNKNOWN INDICATION
     Dosage: 75 MG, QD
     Route: 065
  9. AMLODIPINE [Concomitant]
     Indication: PRODUCT USED FOR UNKNOWN INDICATION
     Dosage: 5 MG, QD
     Route: 065
  10. CEFTRIAXONE [Concomitant]
     Indication: LOWER RESPIRATORY TRACT INFECTION
     Dosage: 1 G, QD
     Route: 042
  11. FERROUS SULFATE [Concomitant]
     Indication: PRODUCT USED FOR UNKNOWN INDICATION
     Dosage: 600 MG, QD
     Route: 065
  12. LANSOPRAZOLE [Concomitant]
     Indication: PRODUCT USED FOR UNKNOWN INDICATION
     Dosage: 30 MG, QD
     Route: 065
  13. SIMVASTATIN [Concomitant]
     Indication: PRODUCT USED FOR UNKNOWN INDICATION
     Dosage: 10 MG/DAY
     Route: 048

REACTIONS (3)
  - Myositis [Recovered/Resolved]
  - Liver function test abnormal [Unknown]
  - Drug interaction [Recovered/Resolved]
